FAERS Safety Report 8974375 (Version 2)
Quarter: 2012Q4

REPORT INFORMATION
  Report Type: 
  Country: GB (occurrence: GB)
  Receive Date: 20121219
  Receipt Date: 20121221
  Transmission Date: 20130627
  Serious: Yes (Other)
  Sender: FDA-Public Use
  Company Number: GB-009507513-1212GBR007264

PATIENT
  Age: 50 Year
  Sex: Female

DRUGS (5)
  1. SINEMET [Suspect]
     Indication: PARKINSON^S DISEASE
     Dosage: 125 mg, qid
     Route: 048
     Dates: start: 200902
  2. NEUPRO [Suspect]
     Indication: PARKINSON^S DISEASE
     Dosage: 8 mg, qd
     Route: 062
     Dates: start: 200909, end: 201208
  3. CITALOPRAM [Concomitant]
     Indication: DEPRESSED MOOD
     Dosage: 40 mg, qd
     Route: 048
     Dates: start: 200809
  4. PRAMIPEXOLE [Concomitant]
  5. ROPINIROLE [Concomitant]

REACTIONS (1)
  - Impulse-control disorder [Recovering/Resolving]
